FAERS Safety Report 4359927-1 (Version None)
Quarter: 2004Q2

REPORT INFORMATION
  Report Type: 
  Country: None (occurrence: None)
  Receive Date: 20040518
  Receipt Date: 20030520
  Transmission Date: 20050107
  Serious: Yes (Other)
  Sender: FDA-Public Use
  Company Number: PHEH2003US04261

PATIENT
  Age: 78 Year
  Sex: Male

DRUGS (2)
  1. CHEMOTHERAPEUTICS,OTHER [Concomitant]
  2. AREDIA [Suspect]
     Dosage: UNKN/UNK

REACTIONS (3)
  - BONE DEBRIDEMENT [None]
  - OSTEONECROSIS [None]
  - SEQUESTRECTOMY [None]
